FAERS Safety Report 7781902-5 (Version None)
Quarter: 2011Q3

REPORT INFORMATION
  Report Type: 
  Country: None (occurrence: None)
  Receive Date: 20110927
  Receipt Date: 20110916
  Transmission Date: 20111222
  Serious: Yes (Hospitalization, Other)
  Sender: FDA-Public Use
  Company Number: JP-CELGENEUS-087-21880-11091881

PATIENT
  Sex: Male

DRUGS (16)
  1. REVLIMID [Suspect]
     Dosage: 20 MILLIGRAM
     Route: 048
     Dates: start: 20100204, end: 20110224
  2. DEXAMETHASONE [Suspect]
     Indication: MULTIPLE MYELOMA
     Dosage: 40 MILLIGRAM
     Route: 048
     Dates: start: 20101203, end: 20101231
  3. REVLIMID [Suspect]
     Dosage: 15 MILLIGRAM
     Route: 048
     Dates: start: 20110107, end: 20110127
  4. REVLIMID [Suspect]
     Dosage: 20 MILLIGRAM
     Route: 048
     Dates: start: 20110304, end: 20110324
  5. DECADRON [Concomitant]
     Indication: REFRACTORY CANCER
     Dosage: 40 MILLIGRAM
     Route: 048
     Dates: start: 20101105, end: 20101119
  6. REVLIMID [Suspect]
     Indication: MULTIPLE MYELOMA
     Dosage: 5 MILLIGRAM
     Route: 048
     Dates: start: 20101001, end: 20101021
  7. REVLIMID [Suspect]
     Indication: REFRACTORY CANCER
     Dosage: 10 MILLIGRAM
     Route: 048
     Dates: start: 20101105, end: 20101125
  8. DEXAMETHASONE [Suspect]
     Dosage: 40 MILLIGRAM
     Route: 048
     Dates: start: 20110304, end: 20110318
  9. DECADRON [Concomitant]
     Indication: MULTIPLE MYELOMA
     Dosage: 40 MILLIGRAM
     Route: 048
     Dates: start: 20101001, end: 20101023
  10. REVLIMID [Suspect]
     Dosage: 10 MILLIGRAM
     Route: 048
     Dates: start: 20101203, end: 20101223
  11. CANDESARTAN CILEXETIL [Concomitant]
     Indication: HYPERTENSION
     Dosage: 4 MILLIGRAM
     Route: 048
     Dates: start: 20101001
  12. DAIPHEN [Concomitant]
     Indication: PROPHYLAXIS
     Dosage: 4 TABLET
     Route: 048
     Dates: start: 20101002
  13. DEXAMETHASONE [Suspect]
     Indication: REFRACTORY CANCER
     Dosage: 40 MILLIGRAM
     Route: 048
     Dates: start: 20110107, end: 20110128
  14. AMLODIN OD [Concomitant]
     Indication: HYPERTENSION
     Dosage: 5 MILLIGRAM
     Route: 048
     Dates: start: 20101001
  15. DEXAMETHASONE [Suspect]
     Dosage: 40 MILLIGRAM
     Route: 048
     Dates: start: 20110204, end: 20110225
  16. OMEPRAZOLE [Concomitant]
     Indication: PROPHYLAXIS
     Dosage: 20 MILLIGRAM
     Route: 048
     Dates: start: 20101001

REACTIONS (3)
  - CONSTIPATION [None]
  - SUBILEUS [None]
  - ENTEROCOLITIS VIRAL [None]
